FAERS Safety Report 4345295-8 (Version None)
Quarter: 2004Q2

REPORT INFORMATION
  Report Type: 
  Country: None (occurrence: None)
  Receive Date: 20040420
  Receipt Date: 20040405
  Transmission Date: 20050107
  Serious: Yes (Life-Threatening, Hospitalization)
  Sender: FDA-Public Use
  Company Number: 205715

PATIENT
  Age: 56 Year
  Sex: Male
  Weight: 72 kg

DRUGS (4)
  1. EFALIZUMAB (EFALIZUMAB) PWDR + SOLVENT, INJECTION SOLN, 125MG [Suspect]
     Indication: PSORIASIS
     Dosage: 0.7 ML, 1/WEEK, SUBCUTANEOUS
     Route: 058
     Dates: start: 20040113, end: 20040327
  2. ZANTAC [Concomitant]
  3. ZESTRIL [Concomitant]
  4. ALLOPURINOL [Concomitant]

REACTIONS (9)
  - BLOOD PRESSURE INCREASED [None]
  - BRAIN COMPRESSION [None]
  - CONFUSIONAL STATE [None]
  - FEELING ABNORMAL [None]
  - FLAT AFFECT [None]
  - HEADACHE [None]
  - HEMIPARESIS [None]
  - LETHARGY [None]
  - SUBDURAL HAEMATOMA [None]
